FAERS Safety Report 6446852-5 (Version None)
Quarter: 2009Q4

REPORT INFORMATION
  Report Type: 
  Country: None (occurrence: None)
  Receive Date: 20091119
  Receipt Date: 20081114
  Transmission Date: 20100525
  Serious: No
  Sender: FDA-Public Use
  Company Number: US-BRISTOL-MYERS SQUIBB COMPANY-14408389

PATIENT
  Age: 66 Year
  Sex: Female

DRUGS (2)
  1. CAPOZIDE 25/15 [Suspect]
     Indication: HYPERTENSION
     Dosage: DF = 1 TAB
     Route: 048
     Dates: start: 20030101
  2. SYNTHROID [Concomitant]

REACTIONS (1)
  - HEADACHE [None]
